FAERS Safety Report 10083488 (Version 1)
Quarter: 2014Q2

REPORT INFORMATION
  Report Type: Spontaneous
  Country: US (occurrence: None)
  Receive Date: 20140416
  Receipt Date: 20140416
  Transmission Date: 20141212
  Serious: Yes (Other)
  Sender: FDA-Public Use
  Company Number: None

PATIENT
  Age: 3 Year
  Sex: Female
  Weight: 19.96 kg

DRUGS (1)
  1. CHILDRENS LORATADINE [Suspect]
     Indication: MULTIPLE ALLERGIES
     Route: 048

REACTIONS (1)
  - Hallucination, visual [None]
